FAERS Safety Report 9212988 (Version 1)
Quarter: 2013Q1

REPORT INFORMATION
  Report Type: Spontaneous
  Country: US (occurrence: None)
  Receive Date: 20120820
  Receipt Date: 20120820
  Transmission Date: 20140127
  Serious: No
  Sender: FDA-Public Use
  Company Number: 1000031566

PATIENT
  Age: 52 Year
  Sex: Female

DRUGS (3)
  1. VIIBRYD (VILAZODONE) (TABLETS) [Suspect]
     Indication: DEPRESSION
     Dosage: 10 MG, 1 IN 1 D
     Route: 048
     Dates: start: 201112, end: 201112
  2. ARMOUR THYROID [Concomitant]
  3. PRAVASTATIN [Concomitant]

REACTIONS (1)
  - Musculoskeletal stiffness [None]
